FAERS Safety Report 15902128 (Version 1)
Quarter: 2019Q1

REPORT INFORMATION
  Report Type: Spontaneous
  Country: US (occurrence: US)
  Receive Date: 20190201
  Receipt Date: 20190201
  Transmission Date: 20190417
  Serious: Yes (Other)
  Sender: FDA-Public Use
  Company Number: US-NOVOPROD-643856

PATIENT
  Age: 63 Year
  Sex: Female

DRUGS (1)
  1. OZEMPIC [Suspect]
     Active Substance: SEMAGLUTIDE
     Indication: PRODUCT USED FOR UNKNOWN INDICATION
     Dosage: UNK
     Route: 058

REACTIONS (20)
  - Feeling of despair [Unknown]
  - Nausea [Unknown]
  - Dizziness [Unknown]
  - Insomnia [Unknown]
  - Influenza [Unknown]
  - Abdominal distension [Unknown]
  - Abdominal pain upper [Unknown]
  - Pain [Unknown]
  - Confusional state [Unknown]
  - Diarrhoea [Unknown]
  - Flatulence [Unknown]
  - Nightmare [Unknown]
  - Feelings of worthlessness [Unknown]
  - Anxiety [Unknown]
  - Agitation [Unknown]
  - Muscle rigidity [Unknown]
  - Hyperacusis [Unknown]
  - Photophobia [Unknown]
  - Abdominal pain lower [Unknown]
  - Blood glucose increased [Unknown]
